FAERS Safety Report 19711362 (Version 3)
Quarter: 2021Q3

REPORT INFORMATION
  Report Type: Spontaneous
  Country: JP (occurrence: JP)
  Receive Date: 20210816
  Receipt Date: 20210902
  Transmission Date: 20211014
  Serious: Yes (Death, Life-Threatening, Hospitalization)
  Sender: FDA-Public Use
  Company Number: JP-ABBVIE-21K-087-4038441-00

PATIENT
  Age: 70 Year
  Sex: Female

DRUGS (4)
  1. VENCLEXTA [Suspect]
     Active Substance: VENETOCLAX
     Route: 048
     Dates: start: 20210713, end: 20210808
  2. AZACITIDINE. [Concomitant]
     Active Substance: AZACITIDINE
     Indication: ACUTE MYELOID LEUKAEMIA
     Dosage: 75 MG/M2
     Route: 058
     Dates: start: 20210608, end: 20210614
  3. AZACITIDINE. [Concomitant]
     Active Substance: AZACITIDINE
     Dosage: 75 MG/M2
     Route: 058
     Dates: start: 20210713, end: 20210719
  4. VENCLEXTA [Suspect]
     Active Substance: VENETOCLAX
     Indication: ACUTE MYELOID LEUKAEMIA
     Route: 048
     Dates: start: 20210608, end: 20210705

REACTIONS (4)
  - Pneumonia [Unknown]
  - Fungal infection [Unknown]
  - Viral infection [Unknown]
  - Myocarditis [Fatal]

NARRATIVE: CASE EVENT DATE: 20210808
